FAERS Safety Report 14846378 (Version 1)
Quarter: 2018Q2

REPORT INFORMATION
  Report Type: Spontaneous
  Country: US (occurrence: US)
  Receive Date: 20180504
  Receipt Date: 20180504
  Transmission Date: 20180711
  Serious: No
  Sender: FDA-Public Use
  Company Number: US-TEVA-797473ACC

PATIENT
  Sex: Female

DRUGS (1)
  1. AVIANE [Suspect]
     Active Substance: ETHINYL ESTRADIOL\LEVONORGESTREL
     Dosage: 0.1/0.02 (UNITS UNSPECIFIED)

REACTIONS (4)
  - Muscle spasms [Unknown]
  - Menorrhagia [Unknown]
  - Vaginal haemorrhage [Unknown]
  - Menstruation delayed [Unknown]
